FAERS Safety Report 7074046-1 (Version None)
Quarter: 2010Q4

REPORT INFORMATION
  Report Type: 
  Country: None (occurrence: None)
  Receive Date: 20101029
  Receipt Date: 20101022
  Transmission Date: 20110411
  Serious: Yes (Hospitalization, Other)
  Sender: FDA-Public Use
  Company Number: CHPA2010US16683

PATIENT
  Age: 69 Year
  Sex: Female
  Weight: 79.819 kg

DRUGS (3)
  1. VOLTAREN [Suspect]
     Indication: INFLAMMATION
     Dosage: 2 G, QD
     Route: 061
  2. ANTIHYPERTENSIVE DRUGS [Concomitant]
  3. CHOLESTEROL- AND TRIGLYCERIDE REDUCERS [Concomitant]

REACTIONS (2)
  - CHEST PAIN [None]
  - OFF LABEL USE [None]
